FAERS Safety Report 24381811 (Version 2)
Quarter: 2024Q4

REPORT INFORMATION
  Report Type: Spontaneous
  Country: US (occurrence: None)
  Receive Date: 20241001
  Receipt Date: 20241030
  Transmission Date: 20250114
  Serious: Yes (Death, Hospitalization)
  Sender: MDD OPERATIONS
  Company Number: US-MDD US Operations-MDD202407-002388

PATIENT
  Age: 83 Year
  Sex: Male

DRUGS (1)
  1. APOKYN [Suspect]
     Active Substance: APOMORPHINE HYDROCHLORIDE
     Indication: Parkinson^s disease
     Dosage: /AS NEEDED
     Route: 058
     Dates: start: 20231027

REACTIONS (5)
  - Death [Fatal]
  - Self-injurious ideation [Unknown]
  - Aggression [Unknown]
  - Behaviour disorder [Unknown]
  - Therapy cessation [Unknown]

NARRATIVE: CASE EVENT DATE: 20240101
